FAERS Safety Report 7180529-6 (Version None)
Quarter: 2010Q4

REPORT INFORMATION
  Report Type: 
  Country: None (occurrence: None)
  Receive Date: 20101221
  Receipt Date: 20101209
  Transmission Date: 20110411
  Serious: Yes (Other)
  Sender: FDA-Public Use
  Company Number: FR-ELI_LILLY_AND_COMPANY-FR201012003440

PATIENT
  Age: 67 Year
  Sex: Female

DRUGS (1)
  1. OPTRUMA [Suspect]
     Indication: OSTEOPOROSIS
     Dosage: 60 MG, DAILY (1/D)

REACTIONS (2)
  - RETINAL ARTERY OCCLUSION [None]
  - VISUAL FIELD DEFECT [None]
